FAERS Safety Report 24352037 (Version 2)
Quarter: 2024Q4

REPORT INFORMATION
  Report Type: Spontaneous
  Country: AT (occurrence: AT)
  Receive Date: 20240923
  Receipt Date: 20241002
  Transmission Date: 20250115
  Serious: Yes (Hospitalization, Other)
  Sender: PFIZER
  Company Number: AT-TAKEDA-2024TUS092164

PATIENT
  Age: 54 Year
  Sex: Male

DRUGS (12)
  1. BRENTUXIMAB VEDOTIN [Suspect]
     Active Substance: BRENTUXIMAB VEDOTIN
     Indication: Hodgkin^s disease mixed cellularity stage IV
     Dosage: UNK
     Route: 065
     Dates: start: 202404
  2. BRENTUXIMAB VEDOTIN [Suspect]
     Active Substance: BRENTUXIMAB VEDOTIN
     Indication: Hodgkin^s disease
  3. DOXORUBICIN HYDROCHLORIDE [Suspect]
     Active Substance: DOXORUBICIN HYDROCHLORIDE
     Indication: Hodgkin^s disease mixed cellularity stage IV
     Dosage: UNK
     Route: 065
     Dates: start: 202404
  4. DOXORUBICIN HYDROCHLORIDE [Suspect]
     Active Substance: DOXORUBICIN HYDROCHLORIDE
     Indication: Hodgkin^s disease
  5. DEXAMETHASONE [Suspect]
     Active Substance: DEXAMETHASONE
     Indication: Hodgkin^s disease mixed cellularity stage IV
     Dosage: UNK
     Route: 065
     Dates: start: 202404
  6. DEXAMETHASONE [Suspect]
     Active Substance: DEXAMETHASONE
     Indication: Hodgkin^s disease
  7. ETOPOSIDE [Suspect]
     Active Substance: ETOPOSIDE
     Indication: Hodgkin^s disease mixed cellularity stage IV
     Dosage: UNK
     Route: 065
     Dates: start: 202404
  8. ETOPOSIDE [Suspect]
     Active Substance: ETOPOSIDE
     Indication: Hodgkin^s disease
  9. CYCLOPHOSPHAMIDE [Suspect]
     Active Substance: CYCLOPHOSPHAMIDE
     Indication: Hodgkin^s disease mixed cellularity stage IV
     Dosage: UNK
     Route: 065
     Dates: start: 202404
  10. CYCLOPHOSPHAMIDE [Suspect]
     Active Substance: CYCLOPHOSPHAMIDE
     Indication: Hodgkin^s disease
  11. DACARBAZINE [Suspect]
     Active Substance: DACARBAZINE
     Indication: Hodgkin^s disease mixed cellularity stage IV
     Dosage: UNK
     Route: 065
     Dates: start: 202404
  12. DACARBAZINE [Suspect]
     Active Substance: DACARBAZINE
     Indication: Hodgkin^s disease

REACTIONS (6)
  - Leukopenia [Unknown]
  - Neutrophil count abnormal [Unknown]
  - C-reactive protein increased [Unknown]
  - Staphylococcal infection [Unknown]
  - Streptococcal infection [Unknown]
  - Anaemia [Unknown]
